FAERS Safety Report 4555558-9 (Version None)
Quarter: 2005Q1

REPORT INFORMATION
  Report Type: 
  Country: None (occurrence: None)
  Receive Date: 20050118
  Receipt Date: 20050118
  Transmission Date: 20050727
  Serious: Yes (Hospitalization)
  Sender: FDA-Public Use
  Company Number: None

PATIENT
  Age: 64 Year
  Sex: Female
  Weight: 59 kg

DRUGS (2)
  1. CISPLATIN [Suspect]
     Indication: SQUAMOUS CELL CARCINOMA
     Dosage: 100 MG /M2 Q 3 WKS IV (158 MG)
     Route: 042
     Dates: start: 20031022
  2. RADIOTHERAPY TO HEAD/NECK [Suspect]
     Indication: SQUAMOUS CELL CARCINOMA
     Dosage: DAILY MON-FRI 10/22/04 - TOTAL 7200 GY

REACTIONS (3)
  - BRONCHITIS [None]
  - METASTATIC NEOPLASM [None]
  - PLEURAL EFFUSION [None]
